FAERS Safety Report 8259442 (Version 9)
Quarter: 2014Q2

REPORT INFORMATION
  Report Type: Report from Study
  Country: JP (occurrence: JP)
  Receive Date: 20111122
  Receipt Date: 20140529
  Transmission Date: 20141212
  Serious: Yes (Hospitalization)
  Sender: FDA-Public Use
  Company Number: JP-PFIZER INC-2011282990

PATIENT
  Age: 51 Year
  Sex: Male
  Weight: 63 kg

DRUGS (11)
  1. NOVASTAN [Suspect]
     Indication: HEPARIN-INDUCED THROMBOCYTOPENIA
     Dosage: 0.5 MCG/KG/MIN
     Route: 041
     Dates: start: 20110723, end: 20110723
  2. NOVASTAN [Suspect]
     Dosage: 0.4286 MCG/KG/MIN
     Route: 041
     Dates: start: 20110723, end: 20110724
  3. NOVASTAN [Suspect]
     Dosage: 0.357 MCG/KG/MIN
     Route: 041
     Dates: start: 20110724, end: 20110729
  4. NOVASTAN [Suspect]
     Dosage: 0.4286 MCG/KG/MIN
     Route: 041
     Dates: start: 20110729, end: 20110730
  5. RIFAMPICIN [Suspect]
     Indication: ENDOCARDITIS
     Dosage: 450 MG, DAILY
     Route: 048
     Dates: start: 20110707, end: 20110728
  6. VANCOMYCIN [Suspect]
     Indication: ENDOCARDITIS
     Dosage: 3 G, DAILY
     Route: 042
     Dates: start: 20110706, end: 20110721
  7. HEPARINE [Suspect]
     Indication: ANTICOAGULANT THERAPY
     Dosage: UNK
     Route: 041
     Dates: start: 20110716, end: 20110723
  8. ARBEKACIN SULFATE [Suspect]
     Indication: ENDOCARDITIS
     Dosage: 300 MG, DAILY
     Route: 042
     Dates: start: 20110707, end: 20110721
  9. WARFARIN POTASSIUM [Concomitant]
     Indication: ANTICOAGULANT THERAPY
     Dosage: 2 MG, DAILY
     Route: 048
     Dates: start: 20110617
  10. ZYVOX [Concomitant]
     Indication: ENDOCARDITIS
     Dosage: 600 MG, DAILY
     Route: 042
     Dates: start: 20110721, end: 20110805
  11. LASIX [Concomitant]
     Dosage: 40 MG, DAILY
     Route: 042
     Dates: start: 20110724, end: 20110730

REACTIONS (2)
  - Eosinophil count increased [Recovered/Resolved]
  - Hepatic function abnormal [Recovered/Resolved]
